FAERS Safety Report 16412589 (Version 2)
Quarter: 2019Q2

REPORT INFORMATION
  Report Type: Report from Study
  Country: US (occurrence: US)
  Receive Date: 20190610
  Receipt Date: 20190630
  Transmission Date: 20190711
  Serious: Yes (Hospitalization, Other)
  Sender: FDA-Public Use
  Company Number: US-BTG-201900097

PATIENT
  Age: 57 Year
  Sex: Male
  Weight: 86.9 kg

DRUGS (6)
  1. VORAXAZE [Suspect]
     Active Substance: GLUCARPIDASE
     Indication: TOXICITY TO VARIOUS AGENTS
     Dosage: THIRD ROUND OF TREATMENT
     Route: 065
     Dates: start: 20190612, end: 20190612
  2. RITUXIMAB. [Suspect]
     Active Substance: RITUXIMAB
     Indication: CENTRAL NERVOUS SYSTEM LYMPHOMA
     Dosage: FIRST ROUND OF TREATMENT
     Route: 065
     Dates: start: 20190513
  3. LEUCOVORIN. [Suspect]
     Active Substance: LEUCOVORIN
     Indication: TOXICITY TO VARIOUS AGENTS
     Dosage: LEUCOVORIN ADMINISTERED 26H POST MTX AT DOSE 25MG AND THEREAFTER EVERY 6H UNTIL MTX {100 NMOL/L
     Dates: start: 20190515
  4. VORAXAZE [Suspect]
     Active Substance: GLUCARPIDASE
     Indication: TOXICITY TO VARIOUS AGENTS
     Dosage: SECOND ROUND OF TREATMENT, VORAXAZE WAS GIVEN AT 12:02 PM
     Route: 065
     Dates: start: 20190529, end: 20190529
  5. METHOTREXATE. [Suspect]
     Active Substance: METHOTREXATE
     Indication: CENTRAL NERVOUS SYSTEM LYMPHOMA
     Dosage: 6 G/M2, FIRST ROUND OF TREATMENT
     Route: 042
     Dates: start: 20190514
  6. VORAXAZE [Suspect]
     Active Substance: GLUCARPIDASE
     Indication: TOXICITY TO VARIOUS AGENTS
     Dosage: FIRST ROUND OF TREATMENT
     Route: 065
     Dates: start: 20190515, end: 20190515

REACTIONS (1)
  - Bacterial sepsis [Unknown]

NARRATIVE: CASE EVENT DATE: 20190530
